FAERS Safety Report 10475706 (Version 1)
Quarter: 2014Q3

REPORT INFORMATION
  Report Type: Spontaneous
  Country: US (occurrence: US)
  Receive Date: 20140925
  Receipt Date: 20140925
  Transmission Date: 20150326
  Serious: No
  Sender: FDA-Public Use
  Company Number: US-PFIZER INC-2014263611

PATIENT
  Age: 11 Year
  Sex: Female

DRUGS (1)
  1. GENOTROPIN [Suspect]
     Active Substance: SOMATROPIN
     Indication: DWARFISM
     Dosage: 1.8 MG, DAILY(EVERY BED TIME)
     Route: 058

REACTIONS (4)
  - Nausea [Unknown]
  - Vomiting [Unknown]
  - Back pain [Unknown]
  - Injection site reaction [Unknown]
